FAERS Safety Report 17845658 (Version 4)
Quarter: 2023Q4

REPORT INFORMATION
  Report Type: Spontaneous
  Country: US (occurrence: US)
  Receive Date: 20200601
  Receipt Date: 20231229
  Transmission Date: 20240109
  Serious: No
  Sender: FDA-Public Use
  Company Number: US-PFIZER INC-2020212900

PATIENT
  Age: 74 Year
  Sex: Female
  Weight: 72.118 kg

DRUGS (2)
  1. IBRANCE [Suspect]
     Active Substance: PALBOCICLIB
     Indication: Breast cancer stage IV
     Dosage: 125 MG, CYCLIC (ONCE PER DAY FOR 21 DAYS, 7 DAYS OFF)
     Route: 048
     Dates: start: 20190115
  2. LETROZOLE [Concomitant]
     Active Substance: LETROZOLE
     Dosage: 2.5 MG
     Dates: start: 20190115

REACTIONS (5)
  - Asthenia [Not Recovered/Not Resolved]
  - Alopecia [Recovering/Resolving]
  - Skin lesion [Not Recovered/Not Resolved]
  - Stomatitis [Unknown]
  - Weight decreased [Unknown]

NARRATIVE: CASE EVENT DATE: 20200507
